FAERS Safety Report 12259251 (Version 1)
Quarter: 2016Q2

REPORT INFORMATION
  Report Type: Spontaneous
  Country: US (occurrence: US)
  Receive Date: 20160412
  Receipt Date: 20160412
  Transmission Date: 20160815
  Serious: No
  Sender: FDA-Public Use
  Company Number: US-SA-2015SA085531

PATIENT
  Age: 6 Year
  Sex: Female

DRUGS (2)
  1. ALLEGRA [Suspect]
     Active Substance: FEXOFENADINE HYDROCHLORIDE
     Indication: MULTIPLE ALLERGIES
     Dosage: PRODUCT START DATE: 2 DAYS AGO?DOSAGE: 1 TEASPOON?DAILY DOSE: 2 TEASPOON
     Route: 048
  2. ALLEGRA [Suspect]
     Active Substance: FEXOFENADINE HYDROCHLORIDE
     Indication: NASAL CONGESTION
     Dosage: PRODUCT START DATE: 2 DAYS AGO?DOSAGE: 1 TEASPOON?DAILY DOSE: 2 TEASPOON
     Route: 048

REACTIONS (2)
  - Ear pain [Unknown]
  - Extra dose administered [Unknown]
